FAERS Safety Report 7686862-3 (Version None)
Quarter: 2011Q3

REPORT INFORMATION
  Report Type: 
  Country: None (occurrence: None)
  Receive Date: 20110816
  Receipt Date: 20110815
  Transmission Date: 20111222
  Serious: Yes (Other)
  Sender: FDA-Public Use
  Company Number: US-PFIZER INC-2011187573

PATIENT
  Sex: Male
  Weight: 92.971 kg

DRUGS (1)
  1. CELEBREX [Suspect]
     Indication: OSTEOARTHRITIS
     Dosage: 200 MG, 2X/DAY
     Route: 048
     Dates: start: 20020101, end: 20110715

REACTIONS (5)
  - SKIN INJURY [None]
  - SKIN PAPILLOMA [None]
  - SKIN DISORDER [None]
  - ECZEMA [None]
  - RASH [None]
